FAERS Safety Report 22069355 (Version 1)
Quarter: 2023Q1

REPORT INFORMATION
  Report Type: Spontaneous
  Country: US (occurrence: US)
  Receive Date: 20230307
  Receipt Date: 20230307
  Transmission Date: 20230418
  Serious: No
  Sender: FDA-Public Use
  Company Number: US-AMNEAL PHARMACEUTICALS-2022-AMRX-03863

PATIENT
  Age: 71 Year
  Sex: Female

DRUGS (2)
  1. RYTARY [Suspect]
     Active Substance: CARBIDOPA\LEVODOPA
     Indication: Parkinson^s disease
     Dosage: 1 CAPSULES, TID
     Route: 048
     Dates: start: 20221026, end: 2022
  2. RYTARY [Suspect]
     Active Substance: CARBIDOPA\LEVODOPA
     Dosage: 48.75-195MG, 1 CAPSULES, TID
     Route: 048
     Dates: start: 20221221

REACTIONS (3)
  - Tremor [Unknown]
  - Therapeutic response shortened [Unknown]
  - Dry mouth [Unknown]

NARRATIVE: CASE EVENT DATE: 20221122
